FAERS Safety Report 4574633-6 (Version None)
Quarter: 2005Q1

REPORT INFORMATION
  Report Type: 
  Country: None (occurrence: None)
  Receive Date: 20050204
  Receipt Date: 20050120
  Transmission Date: 20050727
  Serious: Yes (Hospitalization)
  Sender: FDA-Public Use
  Company Number: MK200501-0172-1

PATIENT
  Age: 46 Year
  Sex: Male

DRUGS (4)
  1. RESTORIL [Suspect]
     Dates: start: 20040605
  2. CELEBREX [Concomitant]
  3. PERCOCET [Concomitant]
  4. RILUTEK (STRENGTHS AND THERAPY DATES NOT REPORTED) [Concomitant]

REACTIONS (6)
  - ACCIDENT [None]
  - DIZZINESS [None]
  - FALL [None]
  - HEAD INJURY [None]
  - MUSCLE SPASTICITY [None]
  - UPPER LIMB FRACTURE [None]
